FAERS Safety Report 8774299 (Version 1)
Quarter: 2012Q4

REPORT INFORMATION
  Report Type: 
  Country: IT (occurrence: FR)
  Receive Date: 20120907
  Receipt Date: 20120907
  Transmission Date: 20130627
  Serious: Yes (Hospitalization)
  Sender: FDA-Public Use
  Company Number: FR-FRI-1000038327

PATIENT
  Age: 76 Year
  Sex: Male

DRUGS (6)
  1. NEBIVOLOL [Suspect]
     Dosage: 2.5 mg
     Route: 048
     Dates: end: 20120518
  2. RAMIPRIL [Suspect]
     Dosage: 1.25 mg
     Route: 048
     Dates: end: 20120518
  3. ZYPREXA [Suspect]
     Dosage: 0.5 mg
     Route: 048
     Dates: end: 20120518
  4. PLAVIX [Concomitant]
  5. KARDEGIC [Concomitant]
  6. RISPERIDONE [Concomitant]

REACTIONS (2)
  - Malaise [Recovered/Resolved]
  - Hypotension [Recovered/Resolved]
